FAERS Safety Report 6376648-4 (Version None)
Quarter: 2009Q3

REPORT INFORMATION
  Report Type: 
  Country: None (occurrence: None)
  Receive Date: 20090925
  Receipt Date: 20090921
  Transmission Date: 20100115
  Serious: Yes (Life-Threatening, Hospitalization, Other)
  Sender: FDA-Public Use
  Company Number: PHEH2009US11441

PATIENT
  Sex: Male

DRUGS (1)
  1. EXJADE [Suspect]
     Dosage: 2125 UNK, DAILY
     Route: 048
     Dates: start: 20071023, end: 20090828

REACTIONS (1)
  - APPARENT DEATH [None]
